FAERS Safety Report 5179371-7 (Version None)
Quarter: 2006Q4

REPORT INFORMATION
  Report Type: 
  Country: None (occurrence: None)
  Receive Date: 20061211
  Receipt Date: 20061127
  Transmission Date: 20070319
  Serious: Yes (Death)
  Sender: FDA-Public Use
  Company Number: 061130-0001076

PATIENT
  Age: 1 Day
  Sex: Male

DRUGS (3)
  1. INDOMETHACIN [Suspect]
     Indication: DRUG EXPOSURE DURING PREGNANCY
  2. TERBUTALINE SULFATE [Concomitant]
  3. MAGNESIUM SULFATE [Concomitant]

REACTIONS (16)
  - ADRENAL HAEMORRHAGE [None]
  - ASCITES [None]
  - BRADYCARDIA FOETAL [None]
  - CAESAREAN SECTION [None]
  - CARDIAC FAILURE [None]
  - DRUG EXPOSURE DURING PREGNANCY [None]
  - DUCTUS ARTERIOSUS PREMATURE CLOSURE [None]
  - FOETAL DISORDER [None]
  - HEART SOUNDS ABNORMAL [None]
  - HEPATIC NECROSIS [None]
  - HYDROPS FOETALIS [None]
  - PLACENTAL DISORDER [None]
  - PLACENTAL TRANSFUSION SYNDROME [None]
  - PLEURAL EFFUSION [None]
  - PULMONARY HYPOPLASIA [None]
  - STILLBIRTH [None]
